FAERS Safety Report 16251685 (Version 1)
Quarter: 2019Q2

REPORT INFORMATION
  Report Type: Spontaneous
  Country: US (occurrence: US)
  Receive Date: 20190429
  Receipt Date: 20190429
  Transmission Date: 20190711
  Serious: Yes (Other)
  Sender: FDA-Public Use
  Company Number: US-OXFORD PHARMACEUTICALS, LLC-2019OXF00062

PATIENT
  Sex: Male

DRUGS (1)
  1. PRIMIDONE. [Suspect]
     Active Substance: PRIMIDONE

REACTIONS (5)
  - Restlessness [Unknown]
  - Reaction to excipient [Unknown]
  - Hallucination [Unknown]
  - Nightmare [Unknown]
  - Abnormal dreams [Unknown]
